FAERS Safety Report 18228237 (Version 30)
Quarter: 2021Q4

REPORT INFORMATION
  Report Type: Report from Study
  Country: FR (occurrence: FR)
  Receive Date: 20200903
  Receipt Date: 20211020
  Transmission Date: 20220303
  Serious: Yes (Death, Life-Threatening, Hospitalization, Other)
  Sender: FDA-Public Use
  Company Number: FR-GLAXOSMITHKLINE-FR2020158924

PATIENT
  Age: 74 Year
  Sex: Male

DRUGS (107)
  1. LANSOPRAZOLE [Suspect]
     Active Substance: LANSOPRAZOLE
     Indication: Gastrointestinal disorder prophylaxis
     Dosage: 78 MG
     Route: 048
  2. LANSOPRAZOLE [Suspect]
     Active Substance: LANSOPRAZOLE
     Indication: Prophylaxis
     Dosage: 30 MILLIGRAM, QD
     Route: 048
     Dates: start: 20200710, end: 20200805
  3. LANSOPRAZOLE [Suspect]
     Active Substance: LANSOPRAZOLE
     Indication: Stress ulcer
     Dosage: 3 MILLIGRAM, QD
     Route: 048
     Dates: start: 20200710, end: 20200805
  4. LANSOPRAZOLE [Suspect]
     Active Substance: LANSOPRAZOLE
     Indication: Prophylaxis
     Dosage: 78 MILLIGRAM, QD
     Route: 048
  5. LANSOPRAZOLE [Suspect]
     Active Substance: LANSOPRAZOLE
     Dosage: 3 MILLIGRAM, QD
     Route: 048
     Dates: start: 20200210, end: 20200805
  6. SERTRALINE HYDROCHLORIDE [Suspect]
     Active Substance: SERTRALINE HYDROCHLORIDE
     Indication: Depression
     Dosage: 50 MILLIGRAM, QD (50 MG, SINGLE )
     Route: 048
     Dates: start: 20200726, end: 20200810
  7. SERTRALINE HYDROCHLORIDE [Suspect]
     Active Substance: SERTRALINE HYDROCHLORIDE
     Dosage: 746.35 MILLIGRAM
     Route: 048
     Dates: start: 20200726, end: 20200810
  8. SERTRALINE HYDROCHLORIDE [Suspect]
     Active Substance: SERTRALINE HYDROCHLORIDE
     Dosage: 50 MG, 1X/DAY
     Route: 048
  9. METHYLPREDNISOLONE [Suspect]
     Active Substance: METHYLPREDNISOLONE
     Indication: Acute respiratory distress syndrome
     Dosage: 1200 MG, 1X/DAY
     Route: 042
     Dates: start: 20200708, end: 20200723
  10. METHYLPREDNISOLONE [Suspect]
     Active Substance: METHYLPREDNISOLONE
     Dosage: 1800 MILLIGRAM
     Route: 042
  11. METHYLPREDNISOLONE [Suspect]
     Active Substance: METHYLPREDNISOLONE
     Dosage: 120 MG, 1D
     Route: 042
     Dates: start: 20200708, end: 20200723
  12. PIPERACILLIN SODIUM\TAZOBACTAM SODIUM [Suspect]
     Active Substance: PIPERACILLIN SODIUM\TAZOBACTAM SODIUM
     Indication: Pneumonia
     Dosage: 4 GRAM, TID
     Route: 042
     Dates: start: 20200723, end: 20200730
  13. PIPERACILLIN SODIUM\TAZOBACTAM SODIUM [Suspect]
     Active Substance: PIPERACILLIN SODIUM\TAZOBACTAM SODIUM
     Indication: Tracheobronchitis
     Dosage: 84 GRAM
     Route: 042
  14. PIPERACILLIN SODIUM\TAZOBACTAM SODIUM [Suspect]
     Active Substance: PIPERACILLIN SODIUM\TAZOBACTAM SODIUM
     Indication: Infection
     Dosage: 12 GRAM, QD
     Route: 042
     Dates: start: 20200723, end: 20200730
  15. PIPERACILLIN SODIUM\TAZOBACTAM SODIUM [Suspect]
     Active Substance: PIPERACILLIN SODIUM\TAZOBACTAM SODIUM
     Dosage: 12 G
     Route: 042
  16. ISUPREL [Suspect]
     Active Substance: ISOPROTERENOL HYDROCHLORIDE
     Dosage: UNK
     Route: 065
     Dates: start: 20200711, end: 20200713
  17. DIAMOX SEQUELS [Suspect]
     Active Substance: ACETAZOLAMIDE
     Dosage: UNK
     Route: 065
  18. LORAZEPAM [Suspect]
     Active Substance: LORAZEPAM
     Indication: Anxiolytic therapy
     Dosage: 10 MILLIGRAM, QD
     Route: 048
     Dates: start: 20200726, end: 20200727
  19. LORAZEPAM [Suspect]
     Active Substance: LORAZEPAM
     Dosage: 10 MG
     Route: 048
     Dates: start: 20200726, end: 20200727
  20. LORAZEPAM [Suspect]
     Active Substance: LORAZEPAM
     Dosage: 2.5 MILLIGRAM, QID
     Route: 048
     Dates: start: 20200726, end: 20200727
  21. LORAZEPAM [Suspect]
     Active Substance: LORAZEPAM
     Dosage: 40 MILLIGRAM, QD
     Dates: start: 20200726, end: 20200727
  22. REMIFENTANIL [Suspect]
     Active Substance: REMIFENTANIL
     Indication: Sedation
     Dosage: 0.1 MCG/KG/MIN, CO
     Route: 042
     Dates: start: 20200720, end: 20200730
  23. MORPHINE SULFATE [Suspect]
     Active Substance: MORPHINE SULFATE
     Dosage: UNK
     Route: 065
  24. URAPIDIL [Suspect]
     Active Substance: URAPIDIL
     Indication: Hypertension
     Dosage: 5 MILLIGRAM, Q1HR
     Route: 042
     Dates: start: 20200709, end: 20200709
  25. URAPIDIL [Suspect]
     Active Substance: URAPIDIL
     Dosage: 120 MG
     Route: 065
  26. ACETAMINOPHEN [Suspect]
     Active Substance: ACETAMINOPHEN
     Indication: Pyrexia
     Dosage: 1 GRAM, PRN
     Route: 042
     Dates: start: 20200719, end: 20200730
  27. POLYETHYLENE GLYCOL 4000 [Suspect]
     Active Substance: POLYETHYLENE GLYCOL 4000
     Indication: Constipation
     Dosage: 2 SACHET, BID
     Route: 048
     Dates: start: 20200713, end: 20200715
  28. POLYETHYLENE GLYCOL 4000 [Suspect]
     Active Substance: POLYETHYLENE GLYCOL 4000
     Dosage: 16 DF
     Route: 065
  29. RACECADOTRIL [Suspect]
     Active Substance: RACECADOTRIL
     Dosage: 8 DAYS
     Route: 065
     Dates: start: 20200727, end: 20200804
  30. CLONIDINE HYDROCHLORIDE [Suspect]
     Active Substance: CLONIDINE HYDROCHLORIDE
     Indication: Hypertension
     Dosage: UNK, 1X/DAY
     Route: 065
     Dates: start: 20200717, end: 20200717
  31. CLONIDINE HYDROCHLORIDE [Suspect]
     Active Substance: CLONIDINE HYDROCHLORIDE
     Indication: Hypertension
     Dosage: UNK
     Dates: start: 20200817, end: 20200817
  32. IPRATROPIUM [Suspect]
     Active Substance: IPRATROPIUM
     Indication: Inhalation therapy
     Dosage: 1.5 MG, 1X/DAY
     Route: 055
  33. IPRATROPIUM [Suspect]
     Active Substance: IPRATROPIUM
     Dosage: 6 MG
     Route: 055
  34. IPRATROPIUM [Suspect]
     Active Substance: IPRATROPIUM
     Dosage: 0.5 MG, TID
     Route: 055
     Dates: start: 20200730, end: 20200803
  35. IPRATROPIUM [Suspect]
     Active Substance: IPRATROPIUM
     Dosage: 6 MG
     Route: 065
  36. IPRATROPIUM [Suspect]
     Active Substance: IPRATROPIUM
     Dosage: 1.5 MG, 3X/DAY
  37. DIAZEPAM [Suspect]
     Active Substance: DIAZEPAM
     Dosage: UNK
     Route: 065
  38. ISOSORBIDE DINITRATE [Suspect]
     Active Substance: ISOSORBIDE DINITRATE
     Dosage: UNK
     Route: 065
     Dates: start: 20200714, end: 20200720
  39. NIMESULIDE [Suspect]
     Active Substance: NIMESULIDE
     Indication: Endotracheal intubation
     Dosage: 20 MG, 1X/DAY
     Route: 042
     Dates: start: 20200715, end: 20200715
  40. NIMESULIDE [Suspect]
     Active Substance: NIMESULIDE
     Indication: Neuromuscular blocking therapy
  41. CALCIUM PHOSPHATE, DIBASIC, ANHYDROUS\MAGNESIUM GLYCEROPHOSPHATE\PHOSP [Suspect]
     Active Substance: CALCIUM PHOSPHATE, DIBASIC, ANHYDROUS\MAGNESIUM GLYCEROPHOSPHATE\PHOSPHORIC ACID\SODIUM PHOSPHATE, D
     Indication: Pneumonia
     Dosage: 6 GRAM, QD
     Route: 042
     Dates: start: 20200708, end: 20200715
  42. CEFOTAXIME [Suspect]
     Active Substance: CEFOTAXIME SODIUM
     Indication: Pneumonia
     Dosage: 2 GRAM, TID
     Route: 042
     Dates: start: 20200708, end: 20200715
  43. CEFOTAXIME [Suspect]
     Active Substance: CEFOTAXIME SODIUM
     Dosage: 42 GRAM
     Route: 042
  44. CEFOTAXIME [Suspect]
     Active Substance: CEFOTAXIME SODIUM
     Dosage: 6 GRAM
     Route: 042
     Dates: start: 20200708, end: 20200715
  45. CEFOTAXIME [Suspect]
     Active Substance: CEFOTAXIME SODIUM
     Dosage: 42 UNK, BID
     Route: 042
  46. DUPHALAC [Suspect]
     Active Substance: LACTULOSE
     Indication: Constipation
     Dosage: 20 G, 2X/DAY (20 G GRAM(S) ),1 IN 12HOUR)
     Route: 048
     Dates: start: 20200713, end: 20200715
  47. DUPHALAC [Suspect]
     Active Substance: LACTULOSE
     Dosage: 80 MG
     Route: 048
  48. DUPHALAC [Suspect]
     Active Substance: LACTULOSE
     Dosage: 40 MILLIGRAM, QD
     Route: 048
     Dates: start: 20200713, end: 20200715
  49. DUPHALAC [Suspect]
     Active Substance: LACTULOSE
     Dosage: 40 MILLIGRAM
     Route: 048
  50. SUFENTANIL CITRATE [Suspect]
     Active Substance: SUFENTANIL CITRATE
     Indication: Sedation
     Dosage: 33 UG/MIN, CO
     Route: 042
     Dates: start: 20200709, end: 20200717
  51. SUFENTANIL CITRATE [Suspect]
     Active Substance: SUFENTANIL CITRATE
     Indication: Gait disturbance
     Dosage: UNK
     Route: 042
     Dates: start: 20200709, end: 20200717
  52. SUFENTANIL CITRATE [Suspect]
     Active Substance: SUFENTANIL CITRATE
     Indication: Analgesic therapy
  53. THIAMINE HYDROCHLORIDE [Suspect]
     Active Substance: THIAMINE HYDROCHLORIDE
     Dosage: UNK
     Route: 065
  54. NOREPINEPHRINE [Suspect]
     Active Substance: NOREPINEPHRINE
     Indication: Sedation
     Dosage: 8 MILLIGRAM, QD
     Route: 042
     Dates: start: 20200709, end: 20200712
  55. NOREPINEPHRINE [Suspect]
     Active Substance: NOREPINEPHRINE
     Dosage: 0.8 MILLIGRAM, Q1HR
     Route: 042
     Dates: start: 20200709, end: 20200712
  56. NOREPINEPHRINE [Suspect]
     Active Substance: NOREPINEPHRINE
     Dosage: 0.8 MEQ, CYCLIC (19.20 MEQ MILLIEQUIVALENT(S) ( 0.8 MEQ MILLIEQUIVALENT(S) ),1 IN 1HOUR)
     Route: 042
     Dates: start: 20200709, end: 20200712
  57. FUROSEMIDE [Suspect]
     Active Substance: FUROSEMIDE
     Dosage: UNK
     Route: 065
  58. OXAZEPAM [Suspect]
     Active Substance: OXAZEPAM
     Indication: Anxiolytic therapy
     Dosage: 10 MILLIGRAM, QD
     Route: 048
     Dates: start: 20200802, end: 20200804
  59. OXAZEPAM [Suspect]
     Active Substance: OXAZEPAM
     Dosage: 10 MILLIGRAM, QD
     Route: 048
  60. OXAZEPAM [Suspect]
     Active Substance: OXAZEPAM
     Dosage: 20 MG, 1X/DAY
     Route: 048
  61. OXAZEPAM [Suspect]
     Active Substance: OXAZEPAM
     Dosage: 20 MG
  62. OXAZEPAM [Suspect]
     Active Substance: OXAZEPAM
     Dosage: 20 MG
  63. HYDROXYZINE [Suspect]
     Active Substance: HYDROXYZINE HYDROCHLORIDE
     Dosage: UNK
     Route: 065
  64. LOPERAMIDE [Suspect]
     Active Substance: LOPERAMIDE
     Indication: Diarrhoea
     Dosage: 4 MG, SINGLE
     Route: 048
     Dates: start: 20200804, end: 20200804
  65. LOPERAMIDE [Suspect]
     Active Substance: LOPERAMIDE
     Dosage: 4 G
     Route: 065
  66. CALCIUM GLUCONATE [Suspect]
     Active Substance: CALCIUM GLUCONATE
     Dosage: UNK
     Route: 065
  67. LOVENOX [Suspect]
     Active Substance: ENOXAPARIN SODIUM
     Indication: Phlebitis
     Dosage: 6000 IU, SINGLE
     Route: 058
     Dates: start: 20200708, end: 20200807
  68. LOVENOX [Suspect]
     Active Substance: ENOXAPARIN SODIUM
     Dosage: 180 KILO-INTERNATIONAL UNIT
     Route: 065
  69. POTASSIUM CHLORIDE [Suspect]
     Active Substance: POTASSIUM CHLORIDE
     Dosage: UNK
     Route: 065
  70. SPIRAMYCIN [Suspect]
     Active Substance: SPIRAMYCIN
     Indication: Pneumonia
     Dosage: 9 MIU, 1X/DAY
     Route: 042
     Dates: start: 20200708, end: 20200715
  71. SPIRAMYCIN [Suspect]
     Active Substance: SPIRAMYCIN
     Dosage: 63 INTERNATIONAL UNIT
     Route: 065
  72. PROPOFOL [Suspect]
     Active Substance: PROPOFOL
     Indication: Sedation
     Dosage: 150 MG/HR, CO
     Route: 042
     Dates: start: 20200709, end: 20200720
  73. HUMALOG [Suspect]
     Active Substance: INSULIN LISPRO
     Dosage: 1 IU, CO
     Route: 042
     Dates: start: 20200709, end: 20200730
  74. MIDAZOLAM HYDROCHLORIDE [Suspect]
     Active Substance: MIDAZOLAM HYDROCHLORIDE
     Indication: Seizure
     Dosage: 5 MG/HR, CO
     Route: 042
     Dates: start: 20200709, end: 20200713
  75. MORPHINE HYDROCHLORIDE [Suspect]
     Active Substance: MORPHINE HYDROCHLORIDE
     Dosage: UNK
     Route: 065
  76. OXAZEPAM [Suspect]
     Active Substance: OXAZEPAM
     Indication: Anxiolytic therapy
     Dosage: 10 MG, 1X/DAY
     Route: 048
     Dates: start: 20200802, end: 20200804
  77. OXAZEPAM [Suspect]
     Active Substance: OXAZEPAM
     Dosage: 90 MILLIGRAM
     Route: 065
  78. OXAZEPAM [Suspect]
     Active Substance: OXAZEPAM
     Dosage: 20 MG
     Route: 065
  79. LORAZEPAM [Suspect]
     Active Substance: LORAZEPAM
     Indication: Anxiolytic therapy
     Dosage: 2.5 MG, 4X/DAY
     Route: 048
     Dates: start: 20200726, end: 20200727
  80. LORAZEPAM [Suspect]
     Active Substance: LORAZEPAM
     Dosage: 10 MILLIGRAM, QD
     Route: 048
     Dates: start: 20200726, end: 20200727
  81. LORAZEPAM [Suspect]
     Active Substance: LORAZEPAM
     Dosage: 10 MG, 1X/DAY
     Route: 048
  82. IMODIUM [Suspect]
     Active Substance: LOPERAMIDE HYDROCHLORIDE
     Indication: Diarrhoea
     Dosage: 4 MG, SINGLE
     Route: 065
  83. IMODIUM [Suspect]
     Active Substance: LOPERAMIDE HYDROCHLORIDE
     Dosage: 4 MG, SINGLE
     Route: 048
     Dates: start: 20200804, end: 20200804
  84. IMODIUM [Suspect]
     Active Substance: LOPERAMIDE HYDROCHLORIDE
     Dosage: UNK
     Route: 065
  85. POTASSIUM GLUCONATE [Suspect]
     Active Substance: POTASSIUM GLUCONATE
     Dosage: UNK
     Route: 065
  86. POTASSIUM GLUCONATE [Suspect]
     Active Substance: POTASSIUM GLUCONATE
     Dosage: UNK
     Route: 065
  87. AMIODARONE [Suspect]
     Active Substance: AMIODARONE
     Indication: Atrial fibrillation
     Dosage: 907.2 MILLIGRAM, QD
     Route: 042
     Dates: start: 20200725, end: 20200727
  88. FUROSEMIDE [Suspect]
     Active Substance: FUROSEMIDE
     Dosage: UNK
     Route: 065
  89. ENOXAPARIN SODIUM [Suspect]
     Active Substance: ENOXAPARIN SODIUM
     Indication: Phlebitis
     Dosage: 6000 INTERNATIONAL UNIT
     Route: 058
  90. ENOXAPARIN SODIUM [Suspect]
     Active Substance: ENOXAPARIN SODIUM
     Dosage: 6000 INTERNATIONAL UNIT
     Route: 058
     Dates: start: 20200708, end: 20200807
  91. OTILIMAB [Suspect]
     Active Substance: OTILIMAB
     Indication: Coronavirus infection
     Dosage: 1 DF
     Route: 058
     Dates: start: 20200708
  92. NIMBEX [Suspect]
     Active Substance: CISATRACURIUM BESYLATE
     Indication: Endotracheal intubation
     Dosage: 20 MILLIGRAM
     Route: 042
     Dates: start: 20200715, end: 20200715
  93. NIMBEX [Suspect]
     Active Substance: CISATRACURIUM BESYLATE
     Indication: Neuromuscular blocking therapy
  94. INSULIN LISPRO [Suspect]
     Active Substance: INSULIN LISPRO
     Dosage: 1 IU, CO
     Route: 042
     Dates: start: 20200709, end: 20200730
  95. POTASSIUM CHLORIDE [Suspect]
     Active Substance: POTASSIUM CHLORIDE
     Dosage: UNK
     Route: 065
  96. CISATRACURIUM BESYLATE [Suspect]
     Active Substance: CISATRACURIUM BESYLATE
     Indication: Endotracheal intubation
     Dosage: 20 MG
     Route: 042
     Dates: start: 20200715, end: 20200715
  97. CISATRACURIUM BESYLATE [Suspect]
     Active Substance: CISATRACURIUM BESYLATE
     Indication: Neuromuscular blocking therapy
  98. LOPERAMIDE HYDROCHLORIDE [Suspect]
     Active Substance: LOPERAMIDE HYDROCHLORIDE
     Indication: Diarrhoea
     Dosage: 4 MG, 1X/DAY
     Route: 048
     Dates: start: 20200804, end: 20200804
  99. LACTULOSE [Suspect]
     Active Substance: LACTULOSE
     Dosage: 80 G
     Route: 048
  100. ISOPROTERENOL HYDROCHLORIDE [Suspect]
     Active Substance: ISOPROTERENOL HYDROCHLORIDE
     Dosage: UNK
     Dates: start: 20200711, end: 20210713
  101. THIAMINE HYDROCHLORIDE [Suspect]
     Active Substance: THIAMINE HYDROCHLORIDE
     Dosage: UNK
     Route: 065
  102. ATORVASTATIN [Concomitant]
     Active Substance: ATORVASTATIN
     Dosage: UNK
     Route: 065
  103. KARDEGIC [Concomitant]
     Active Substance: ASPIRIN DL-LYSINE
     Dosage: UNK
     Route: 065
  104. KARDEGIC [Concomitant]
     Active Substance: ASPIRIN DL-LYSINE
     Dosage: UNK
     Route: 065
  105. HYDROXYUREA [Concomitant]
     Active Substance: HYDROXYUREA
     Dosage: UNK
     Route: 042
     Dates: start: 20200709, end: 20200712
  106. AMIODARONE [Concomitant]
     Active Substance: AMIODARONE
     Dosage: UNK
     Dates: start: 20200725, end: 20200727
  107. POTASSIUM GLUCONATE [Concomitant]
     Active Substance: POTASSIUM GLUCONATE
     Dosage: UNK
     Route: 065

REACTIONS (1)
  - Toxic epidermal necrolysis [Fatal]

NARRATIVE: CASE EVENT DATE: 20200809
